FAERS Safety Report 19609471 (Version 3)
Quarter: 2021Q3

REPORT INFORMATION
  Report Type: Spontaneous
  Country: NL (occurrence: NL)
  Receive Date: 20210726
  Receipt Date: 20210820
  Transmission Date: 20211014
  Serious: Yes (Death)
  Sender: FDA-Public Use
  Company Number: NL-ACCORD-232963

PATIENT
  Age: 70 Year
  Sex: Male

DRUGS (12)
  1. PANTOPRAZOLE [Concomitant]
     Active Substance: PANTOPRAZOLE
     Dosage: 20 MG
  2. CALCI CHEW D3 [Concomitant]
     Active Substance: CALCIUM CARBONATE\CHOLECALCIFEROL
     Dosage: TABLET 500 MG/800 IU
  3. ETORICOXIB. [Concomitant]
     Active Substance: ETORICOXIB
     Dosage: 90 MG
  4. FOLIC ACID. [Concomitant]
     Active Substance: FOLIC ACID
     Dosage: TABLET 5 MG
  5. RISEDRONATE SODIUM/RISEDRONIC ACID [Concomitant]
     Active Substance: RISEDRONATE SODIUM
     Dosage: FILM?COATED TABLET 35 MG
  6. PERINDOPRIL [Concomitant]
     Active Substance: PERINDOPRIL
     Dosage: 8 MG
  7. SULFASALAZINE. [Concomitant]
     Active Substance: SULFASALAZINE
     Dosage: 500 MG
  8. HYDROXYCHLOROQUINE [Concomitant]
     Active Substance: HYDROXYCHLOROQUINE
     Dosage: 200 MG
  9. METHOTREXATE. [Suspect]
     Active Substance: METHOTREXATE
     Indication: RHEUMATOID ARTHRITIS
     Dosage: 1 X PER WEEK 25 MG
     Dates: start: 2008
  10. CLOPIDOGREL [Concomitant]
     Active Substance: CLOPIDOGREL BISULFATE
     Dosage: 75 MG
  11. COMIRNATY [Suspect]
     Active Substance: TOZINAMERAN
     Indication: COVID-19 IMMUNISATION
     Dosage: 0.3 ML
     Dates: start: 20210605
  12. SIMVASTATIN. [Concomitant]
     Active Substance: SIMVASTATIN
     Dosage: 40 MG

REACTIONS (11)
  - Malaise [Fatal]
  - Ventricular tachycardia [Fatal]
  - Diarrhoea [Fatal]
  - Vomiting [Fatal]
  - Atrial fibrillation [Fatal]
  - Dyspnoea [Fatal]
  - Pneumonia [Fatal]
  - Myocardial infarction [Fatal]
  - Coronary artery stenosis [Fatal]
  - Dizziness [Fatal]
  - Pyrexia [Fatal]

NARRATIVE: CASE EVENT DATE: 20210607
